FAERS Safety Report 10265311 (Version 4)
Quarter: 2014Q3

REPORT INFORMATION
  Report Type: Spontaneous
  Country: JP (occurrence: JP)
  Receive Date: 20140627
  Receipt Date: 20140925
  Transmission Date: 20150326
  Serious: Yes (Hospitalization)
  Sender: FDA-Public Use
  Company Number: JP-B.I. PHARMACEUTICALS,INC./RIDGEFIELD-2014-BI-29196NB

PATIENT
  Age: 56 Year
  Sex: Female
  Weight: 66 kg

DRUGS (5)
  1. PRAZAXA [Suspect]
     Active Substance: DABIGATRAN ETEXILATE MESYLATE
     Indication: ATRIAL TACHYCARDIA
     Dosage: 150 MG
     Route: 048
     Dates: start: 20140313, end: 20140314
  2. PRAZAXA [Suspect]
     Active Substance: DABIGATRAN ETEXILATE MESYLATE
     Dosage: 150 MG
     Route: 048
     Dates: start: 20140415, end: 20140430
  3. NEXIUM [Concomitant]
     Active Substance: ESOMEPRAZOLE MAGNESIUM
     Indication: DYSPEPSIA
     Dosage: 20 MG
     Route: 048
     Dates: start: 20140415, end: 20140430
  4. MAINTATE [Suspect]
     Active Substance: BISOPROLOL FUMARATE
     Indication: ATRIAL TACHYCARDIA
     Dosage: 2.5 MG
     Route: 048
     Dates: start: 20140314, end: 20140414
  5. ELIQUIS [Suspect]
     Active Substance: APIXABAN
     Indication: ATRIAL TACHYCARDIA
     Dosage: 10 MG
     Route: 048
     Dates: start: 20140314, end: 20140414

REACTIONS (2)
  - Drug-induced liver injury [Not Recovered/Not Resolved]
  - Dyspepsia [Recovered/Resolved]

NARRATIVE: CASE EVENT DATE: 20140414
